FAERS Safety Report 11463460 (Version 1)
Quarter: 2015Q3

REPORT INFORMATION
  Report Type: Spontaneous
  Country: US (occurrence: US)
  Receive Date: 20150831
  Receipt Date: 20150831
  Transmission Date: 20151125
  Serious: No
  Sender: FDA-Public Use
  Company Number: US-ELI_LILLY_AND_COMPANY-US201103003334

PATIENT
  Sex: Female

DRUGS (7)
  1. METHOTREXATE [Concomitant]
     Active Substance: METHOTREXATE
     Indication: PSORIATIC ARTHROPATHY
  2. CYMBALTA [Suspect]
     Active Substance: DULOXETINE HYDROCHLORIDE
     Dosage: 30 MG, EACH EVENING
  3. TYLENOL [Concomitant]
     Active Substance: ACETAMINOPHEN
     Indication: MYALGIA
     Dosage: 500 MG, UNK
  4. CYMBALTA [Suspect]
     Active Substance: DULOXETINE HYDROCHLORIDE
     Indication: FIBROMYALGIA
     Dosage: 60 MG, EACH EVENING
  5. TYLENOL [Concomitant]
     Active Substance: ACETAMINOPHEN
     Dosage: 1500 MG, DAILY (1/D)
  6. FOLIC ACID. [Concomitant]
     Active Substance: FOLIC ACID
  7. METFORMIN [Concomitant]
     Active Substance: METFORMIN HYDROCHLORIDE
     Dosage: 850 MG, DAILY (1/D)

REACTIONS (23)
  - Emotional disorder [Unknown]
  - Mental disorder [Unknown]
  - Depressed mood [Unknown]
  - Abdominal pain [Recovered/Resolved]
  - Diarrhoea [Recovered/Resolved]
  - Hypersomnia [Unknown]
  - Weight increased [Unknown]
  - Antisocial behaviour [Not Recovered/Not Resolved]
  - Dissociation [Unknown]
  - Urinary hesitation [Recovered/Resolved]
  - Fatigue [Unknown]
  - Personality change [Unknown]
  - Mood swings [Unknown]
  - Confusional state [Unknown]
  - Blood pressure increased [Unknown]
  - Feeling abnormal [Unknown]
  - Memory impairment [Unknown]
  - Apathy [Not Recovered/Not Resolved]
  - Flat affect [Not Recovered/Not Resolved]
  - Inappropriate affect [Unknown]
  - Tachyphrenia [Unknown]
  - Disturbance in attention [Unknown]
  - Anger [Unknown]
